FAERS Safety Report 24620808 (Version 5)
Quarter: 2025Q4

REPORT INFORMATION
  Report Type: Report from Study
  Country: JP (occurrence: JP)
  Receive Date: 20241114
  Receipt Date: 20251120
  Transmission Date: 20260118
  Serious: Yes (Other)
  Sender: BRISTOL-MYERS SQUIBB COMPANY
  Company Number: JP-ONO-2023JP027868

PATIENT
  Age: 70 Year
  Sex: Male
  Weight: 61.5 kg

DRUGS (8)
  1. OPDIVO [Suspect]
     Active Substance: NIVOLUMAB
     Indication: Squamous cell carcinoma of lung
     Route: 041
     Dates: start: 20230719, end: 20230913
  2. CARBOPLATIN [Suspect]
     Active Substance: CARBOPLATIN
     Indication: Squamous cell carcinoma of lung
     Dosage: AUC5
     Dates: start: 20230719, end: 20230913
  3. PACLITAXEL [Suspect]
     Active Substance: PACLITAXEL
     Indication: Squamous cell carcinoma of lung
     Dates: start: 20230719, end: 20230913
  4. CELECOXIB [Suspect]
     Active Substance: CELECOXIB
     Indication: Wound complication
     Dosage: (ORAL DRUG UNSPECIFIED FORM) 400 MG, EVERYDAY
     Route: 048
     Dates: start: 20231024, end: 20231031
  5. CELECOXIB [Suspect]
     Active Substance: CELECOXIB
     Dosage: (ORAL DRUG UNSPECIFIED FORM) 200 MG, EVERYDAY
     Route: 048
     Dates: start: 20231101, end: 20231106
  6. CELECOXIB [Suspect]
     Active Substance: CELECOXIB
     Dosage: (ORAL DRUG UNSPECIFIED FORM) 400 MG, EVERYDAY
     Route: 048
     Dates: start: 20231107, end: 20231114
  7. CALONAL [Concomitant]
     Active Substance: ACETAMINOPHEN
     Indication: Wound complication
     Dosage: (ORAL DRUG UNSPECIFIED FORM)
  8. MIROGABALIN BESYLATE [Concomitant]
     Active Substance: MIROGABALIN BESYLATE
     Indication: Wound complication
     Dosage: (ORAL DRUG UNSPECIFIED FORM)

REACTIONS (12)
  - Interstitial lung disease [Recovering/Resolving]
  - Pulmonary fistula [Recovering/Resolving]
  - Pneumonia [Recovering/Resolving]
  - Drug-induced liver injury [Recovered/Resolved]
  - Rash [Recovering/Resolving]
  - Decreased appetite [Recovered/Resolved]
  - Stomatitis [Recovered/Resolved]
  - White blood cell count decreased [Recovered/Resolved]
  - Neutrophil count decreased [Recovered/Resolved]
  - Nausea [Recovering/Resolving]
  - Taste disorder [Recovered/Resolved]
  - Malaise [Recovered/Resolved]

NARRATIVE: CASE EVENT DATE: 20230721
